FAERS Safety Report 15729649 (Version 1)
Quarter: 2018Q4

REPORT INFORMATION
  Report Type: Spontaneous
  Country: US (occurrence: US)
  Receive Date: 20181130
  Receipt Date: 20181130
  Transmission Date: 20190205
  Serious: Yes (Death)
  Sender: FDA-Public Use
  Company Number: None

PATIENT
  Age: 49 Year
  Sex: Male

DRUGS (1)
  1. SILDENAFIL, 20 MG [Suspect]
     Active Substance: SILDENAFIL
     Indication: HYPERTENSION
     Route: 048
     Dates: start: 20180125, end: 20181117

REACTIONS (1)
  - Unevaluable event [None]

NARRATIVE: CASE EVENT DATE: 20181117
